FAERS Safety Report 9085962 (Version 1)
Quarter: 2013Q1

REPORT INFORMATION
  Report Type: Report from Study
  Country: US (occurrence: US)
  Receive Date: 20130131
  Receipt Date: 20130131
  Transmission Date: 20140127
  Serious: No
  Sender: FDA-Public Use
  Company Number: US-ABBOTT-12P-163-1010350-00

PATIENT
  Age: 60 Year
  Sex: Female

DRUGS (3)
  1. HUMIRA [Suspect]
     Indication: PSORIASIS
     Dates: start: 20120917
  2. SIMVASTATIN [Concomitant]
     Indication: BLOOD CHOLESTEROL INCREASED
     Dosage: DAILY
  3. LEXAPRO [Concomitant]
     Indication: DEPRESSION
     Dosage: THE PATIENT THINKS THE DOSE IS 10 MG DAILY

REACTIONS (2)
  - Drug ineffective [Not Recovered/Not Resolved]
  - Sinusitis [Not Recovered/Not Resolved]
